FAERS Safety Report 24247729 (Version 1)
Quarter: 2024Q3

REPORT INFORMATION
  Report Type: Spontaneous
  Country: US (occurrence: US)
  Receive Date: 20240826
  Receipt Date: 20240826
  Transmission Date: 20241017
  Serious: No
  Sender: BRISTOL MYERS SQUIBB
  Company Number: US-BRISTOL-MYERS SQUIBB COMPANY-2024-130534

PATIENT
  Age: 76 Year
  Sex: Female

DRUGS (1)
  1. POMALYST [Suspect]
     Active Substance: POMALIDOMIDE
     Indication: Plasma cell myeloma
     Route: 048
     Dates: start: 20240625, end: 20240812

REACTIONS (5)
  - Rash [Unknown]
  - Muscle spasms [Unknown]
  - Alopecia [Unknown]
  - Nail injury [Unknown]
  - Skin lesion [Unknown]

NARRATIVE: CASE EVENT DATE: 20240812
